FAERS Safety Report 6804806-0 (Version None)
Quarter: 2010Q2

REPORT INFORMATION
  Report Type: 
  Country: None (occurrence: None)
  Receive Date: 20100628
  Receipt Date: 20070604
  Transmission Date: 20101027
  Serious: No
  Sender: FDA-Public Use
  Company Number: US-PFIZER INC-2007045743

PATIENT

DRUGS (1)
  1. GEODON [Suspect]
     Dates: start: 20070509, end: 20070604

REACTIONS (3)
  - ANXIETY [None]
  - HYPERHIDROSIS [None]
  - JOINT STIFFNESS [None]
